FAERS Safety Report 19709663 (Version 1)
Quarter: 2021Q3

REPORT INFORMATION
  Report Type: Spontaneous
  Country: IT (occurrence: IT)
  Receive Date: 20210817
  Receipt Date: 20210817
  Transmission Date: 20211014
  Serious: Yes (Other)
  Sender: FDA-Public Use
  Company Number: IT-MYLANLABS-2021M1050903

PATIENT
  Age: 2 Year
  Sex: Female

DRUGS (5)
  1. ATG                                /00575401/ [Suspect]
     Active Substance: LAPINE T-LYMPHOCYTE IMMUNE GLOBULIN
     Indication: PROPHYLAXIS AGAINST GRAFT VERSUS HOST DISEASE
     Dosage: 15 MILLIGRAM/KILOGRAM
  2. FLUDARABINE [Suspect]
     Active Substance: FLUDARABINE PHOSPHATE
     Indication: STEM CELL TRANSPLANT
     Dosage: UNK
  3. CICLOSPORINE [Suspect]
     Active Substance: CYCLOSPORINE
     Indication: PROPHYLAXIS AGAINST GRAFT VERSUS HOST DISEASE
     Dosage: UNK
  4. THIOTEPA. [Suspect]
     Active Substance: THIOTEPA
     Indication: STEM CELL TRANSPLANT
     Dosage: UNK
  5. TREOSULFAN [Suspect]
     Active Substance: TREOSULFAN
     Indication: STEM CELL TRANSPLANT
     Dosage: UNK

REACTIONS (1)
  - Cytomegalovirus infection reactivation [Recovering/Resolving]
